FAERS Safety Report 9667229 (Version 2)
Quarter: 2013Q4

REPORT INFORMATION
  Report Type: Spontaneous
  Country: CA (occurrence: CA)
  Receive Date: 20131104
  Receipt Date: 20131114
  Transmission Date: 20140711
  Serious: Yes (Hospitalization)
  Sender: FDA-Public Use
  Company Number: CA-SHIRE-ALL1-2013-07301

PATIENT
  Sex: Male

DRUGS (1)
  1. VYVANSE [Suspect]
     Indication: ACCIDENTAL EXPOSURE TO PRODUCT
     Dosage: UNK, UNKNOWN
     Route: 065

REACTIONS (7)
  - Respiratory distress [Recovering/Resolving]
  - Erythema [Recovering/Resolving]
  - Swelling face [Recovering/Resolving]
  - Eyelid oedema [Recovering/Resolving]
  - Blister [Recovering/Resolving]
  - Accidental exposure to product [Recovering/Resolving]
  - Hypersensitivity [Recovering/Resolving]
